FAERS Safety Report 5392858-7 (Version None)
Quarter: 2007Q3

REPORT INFORMATION
  Report Type: 
  Country: None (occurrence: None)
  Receive Date: 20070720
  Receipt Date: 20070709
  Transmission Date: 20080115
  Serious: Yes (Hospitalization, Other)
  Sender: FDA-Public Use
  Company Number: US-PFIZER INC-2007057165

PATIENT
  Sex: Male
  Weight: 152.27 kg

DRUGS (16)
  1. GABAPENTIN [Suspect]
     Indication: NEUROPATHY
  2. LYRICA [Suspect]
     Indication: NEUROPATHY
  3. CYMBALTA [Suspect]
     Indication: NEUROPATHY
  4. METFORMIN HCL [Concomitant]
  5. PROMETHAZINE [Concomitant]
  6. EFFEXOR [Concomitant]
  7. LASIX [Concomitant]
  8. OMEPRAZOLE [Concomitant]
  9. BACLOFEN [Concomitant]
  10. HUMULIN 70/30 [Concomitant]
  11. TYLENOL W/ CODEINE NO. 3 [Concomitant]
  12. HYDROCODONE BITARTRATE [Concomitant]
  13. ASCORBIC ACID [Concomitant]
  14. VITAMIN CAP [Concomitant]
  15. CALCIUM CHLORIDE [Concomitant]
  16. MINERAL SUPPLEMENTS [Concomitant]

REACTIONS (4)
  - ANGINA PECTORIS [None]
  - ATRIOVENTRICULAR BLOCK [None]
  - BLOOD GLUCOSE INCREASED [None]
  - NEURALGIA [None]
